FAERS Safety Report 13960298 (Version 2)
Quarter: 2017Q3

REPORT INFORMATION
  Report Type: Spontaneous
  Country: DE (occurrence: DE)
  Receive Date: 20170912
  Receipt Date: 20170918
  Transmission Date: 20171128
  Serious: Yes (Life-Threatening, Hospitalization)
  Sender: FDA-Public Use
  Company Number: DE-ROCHE-1991627

PATIENT
  Age: 55 Year
  Sex: Female

DRUGS (1)
  1. ACTILYSE [Suspect]
     Active Substance: ALTEPLASE
     Indication: PRODUCT USED FOR UNKNOWN INDICATION
     Dosage: THE FORMULATION, DOSE, FREQUENCY, LOT NUMBER AND EXPIRATION DATE WERE NOT REPORTED.
     Route: 040
     Dates: start: 20170822

REACTIONS (4)
  - Epistaxis [Unknown]
  - Pulmonary oedema [Unknown]
  - Respiratory distress [Unknown]
  - Mechanical ventilation [Unknown]

NARRATIVE: CASE EVENT DATE: 20170822
